FAERS Safety Report 7372518-3 (Version None)
Quarter: 2011Q1

REPORT INFORMATION
  Report Type: 
  Country: None (occurrence: None)
  Receive Date: 20110315
  Receipt Date: 20110303
  Transmission Date: 20110831
  Serious: Yes (Disabling)
  Sender: FDA-Public Use
  Company Number: 2011AP000401

PATIENT
  Age: 72 Year
  Sex: Male

DRUGS (8)
  1. ALFUZOSIN (ALFUZOSIN) [Concomitant]
  2. ACETYLSALICYLIC ACID (ACETYLSALICYLIC ACID) [Concomitant]
  3. AMLODIPINE BESYLATE [Suspect]
     Dosage: 10 MG;QD PO
     Route: 048
  4. ATORVASTATIN (ATORVASTATIN) [Concomitant]
  5. BISOPROLOL (BISOPROLOL) [Concomitant]
  6. FINASTERIDE [Suspect]
     Indication: BENIGN PROSTATIC HYPERPLASIA
     Dosage: 5 MG;QD PO
     Route: 048
  7. LISINOPRIL [Concomitant]
  8. FELODIPINE [Suspect]
     Dosage: 5 MG;PO;QD
     Route: 048

REACTIONS (4)
  - MYALGIA [None]
  - DRUG PRESCRIBING ERROR [None]
  - ARTHRALGIA [None]
  - PROSTATIC SPECIFIC ANTIGEN DECREASED [None]
